FAERS Safety Report 17709541 (Version 1)
Quarter: 2020Q2

REPORT INFORMATION
  Report Type: Spontaneous
  Country: AU (occurrence: AU)
  Receive Date: 20200427
  Receipt Date: 20200427
  Transmission Date: 20200714
  Serious: Yes (Life-Threatening, Other)
  Sender: FDA-Public Use
  Company Number: AU-ROCHE-2568509

PATIENT
  Age: 53 Year
  Sex: Male

DRUGS (5)
  1. STILNOX [Suspect]
     Active Substance: ZOLPIDEM TARTRATE
     Indication: SOMNOLENCE
     Route: 048
     Dates: start: 20160601, end: 20170904
  2. TEMAZEPAM. [Suspect]
     Active Substance: TEMAZEPAM
     Indication: SOMNOLENCE
     Route: 065
  3. TRAMADOL. [Suspect]
     Active Substance: TRAMADOL
     Indication: ANALGESIC THERAPY
     Route: 048
     Dates: start: 20170712, end: 20171010
  4. VALIUM [Suspect]
     Active Substance: DIAZEPAM
     Indication: ANXIETY
     Route: 048
     Dates: start: 20160616, end: 20170905
  5. NORDIAZEPAM [Suspect]
     Active Substance: NORDAZEPAM
     Indication: SOMNOLENCE
     Route: 065

REACTIONS (7)
  - Concomitant disease aggravated [Unknown]
  - Somnambulism [Recovered/Resolved]
  - Drug ineffective [Unknown]
  - Gait disturbance [Unknown]
  - Road traffic accident [Unknown]
  - Dysarthria [Unknown]
  - Irritability [Unknown]

NARRATIVE: CASE EVENT DATE: 20170904
